FAERS Safety Report 7746372-1 (Version None)
Quarter: 2011Q3

REPORT INFORMATION
  Report Type: 
  Country: None (occurrence: None)
  Receive Date: 20110913
  Receipt Date: 20110909
  Transmission Date: 20111222
  Serious: Yes (Hospitalization)
  Sender: FDA-Public Use
  Company Number: DE-SANOFI-AVENTIS-2011SA045822

PATIENT
  Age: 85 Year
  Sex: Male
  Weight: 59.3 kg

DRUGS (2)
  1. DRONEDARONE HCL [Suspect]
     Route: 048
     Dates: start: 20101220, end: 20110124
  2. ANTITHROMBOTIC AGENTS [Concomitant]
     Indication: ANTICOAGULANT THERAPY
     Route: 048
     Dates: end: 20110101

REACTIONS (4)
  - CARDIAC FAILURE [None]
  - RENAL FAILURE ACUTE [None]
  - BLOOD CREATININE INCREASED [None]
  - BLOOD UREA INCREASED [None]
